FAERS Safety Report 25953942 (Version 1)
Quarter: 2025Q4

REPORT INFORMATION
  Report Type: Spontaneous
  Country: US (occurrence: US)
  Receive Date: 20251023
  Receipt Date: 20251023
  Transmission Date: 20260118
  Serious: No
  Sender: PFIZER
  Company Number: US-PFIZER INC-PV202500124274

PATIENT
  Age: 75 Year
  Sex: Female

DRUGS (2)
  1. LIDOCAINE HYDROCHLORIDE [Suspect]
     Active Substance: LIDOCAINE HYDROCHLORIDE
     Dosage: 2 DF
     Dates: start: 20250923
  2. FLUZONE HIGH-DOSE NOS [Suspect]
     Active Substance: INFLUENZA VIRUS VACCINE
     Indication: Influenza
     Dosage: HIGH DOSE
     Route: 030
     Dates: start: 20250923

REACTIONS (9)
  - Illness [Recovered/Resolved]
  - Muscular weakness [Recovered/Resolved]
  - Movement disorder [Recovered/Resolved]
  - Insomnia [Recovered/Resolved]
  - Fatigue [Recovered/Resolved]
  - Chills [Recovered/Resolved]
  - Nausea [Recovered/Resolved]
  - Dizziness [Recovered/Resolved]
  - Pyrexia [Recovered/Resolved]

NARRATIVE: CASE EVENT DATE: 20250901
